FAERS Safety Report 9201840 (Version 3)
Quarter: 2016Q1

REPORT INFORMATION
  Report Type: Report from Study
  Country: CA (occurrence: CA)
  Receive Date: 20130401
  Receipt Date: 20160101
  Transmission Date: 20160526
  Serious: Yes (Other)
  Sender: FDA-Public Use
  Company Number: CA-ROCHE-1170351

PATIENT
  Sex: Female
  Weight: 69.5 kg

DRUGS (13)
  1. NAPROSYN EC [Concomitant]
     Route: 065
  2. QUININE [Concomitant]
     Active Substance: QUININE
     Route: 065
  3. ADVIL [Concomitant]
     Active Substance: IBUPROFEN
  4. NEXIUM [Concomitant]
     Active Substance: ESOMEPRAZOLE MAGNESIUM
     Route: 065
  5. ACTEMRA [Suspect]
     Active Substance: TOCILIZUMAB
     Indication: RHEUMATOID ARTHRITIS
     Route: 042
     Dates: start: 20110810
  6. FOLIC ACID. [Concomitant]
     Active Substance: FOLIC ACID
     Route: 065
  7. METHOTREXATE [Concomitant]
     Active Substance: METHOTREXATE
     Route: 048
  8. LYRICA [Concomitant]
     Active Substance: PREGABALIN
     Route: 065
  9. CYTOTEC [Concomitant]
     Active Substance: MISOPROSTOL
     Route: 065
  10. TRAMCET [Concomitant]
     Active Substance: ACETAMINOPHEN\TRAMADOL
  11. TUMS [Concomitant]
     Active Substance: CALCIUM CARBONATE
     Route: 065
  12. TYLENOL [Concomitant]
     Active Substance: ACETAMINOPHEN
     Route: 065
  13. FLEXERIL (CANADA) [Concomitant]
     Route: 065

REACTIONS (4)
  - Bursitis [Not Recovered/Not Resolved]
  - Tooth disorder [Unknown]
  - Pain in extremity [Not Recovered/Not Resolved]
  - Muscle rupture [Not Recovered/Not Resolved]

NARRATIVE: CASE EVENT DATE: 2012
